FAERS Safety Report 4894284-3 (Version None)
Quarter: 2006Q1

REPORT INFORMATION
  Report Type: 
  Country: None (occurrence: None)
  Receive Date: 20060127
  Receipt Date: 20060117
  Transmission Date: 20060701
  Serious: Yes (Other)
  Sender: FDA-Public Use
  Company Number: PHBS2006IN01117

PATIENT
  Age: 17 Year
  Sex: Female

DRUGS (5)
  1. VALPROATE SODIUM [Suspect]
     Indication: EPILEPSY
     Dosage: 500 MG/DAY
     Route: 065
  2. VALPROATE SODIUM [Suspect]
     Dosage: 1000 MG/DAY
     Route: 065
  3. VALPROATE SODIUM [Suspect]
     Dosage: 1500 MG/DAY
     Route: 065
  4. TOPIRAMATE [Suspect]
     Indication: EPILEPSY
     Dosage: 200 MG/DAY
     Route: 065
  5. CARBAMAZEPINE [Suspect]
     Indication: EPILEPSY
     Dosage: 1200 MG/DAY
     Route: 065

REACTIONS (5)
  - AMMONIA INCREASED [None]
  - ENCEPHALOPATHY [None]
  - FATIGUE [None]
  - SOMNOLENCE [None]
  - VOMITING [None]
